FAERS Safety Report 22241473 (Version 6)
Quarter: 2023Q2

REPORT INFORMATION
  Report Type: Report from Study
  Country: US (occurrence: US)
  Receive Date: 20230421
  Receipt Date: 20230623
  Transmission Date: 20230722
  Serious: Yes (Hospitalization, Other)
  Sender: FDA-Public Use
  Company Number: US-002147023-NVSC2023US090439

PATIENT
  Sex: Female

DRUGS (1)
  1. PIQRAY [Suspect]
     Active Substance: ALPELISIB
     Indication: Breast cancer
     Dosage: 300 MG, QD
     Route: 048
     Dates: start: 20230411

REACTIONS (7)
  - Meningitis staphylococcal [Unknown]
  - Blister [Unknown]
  - Blood glucose decreased [Unknown]
  - Decubitus ulcer [Unknown]
  - Hyperglycaemia [Unknown]
  - Diarrhoea [Recovering/Resolving]
  - Product availability issue [Unknown]
